FAERS Safety Report 10252232 (Version 1)
Quarter: 2014Q2

REPORT INFORMATION
  Report Type: Spontaneous
  Country: US (occurrence: None)
  Receive Date: 20140620
  Receipt Date: 20140620
  Transmission Date: 20141212
  Serious: Yes (Hospitalization)
  Sender: FDA-Public Use
  Company Number: None

PATIENT
  Age: 43 Year
  Sex: Male
  Weight: 85.8 kg

DRUGS (2)
  1. RITUXIMAB [Suspect]
     Indication: INVESTIGATION
     Dosage: 375MG/M2 ONCE IVPS (GIVN ON DAY 15 PRE-TX).?05/29/14 X 1 INFUSED OVER 6H
     Dates: start: 20140529
  2. PREDNISONE 5MG PO DAILY [Concomitant]

REACTIONS (3)
  - Haematuria [None]
  - Haematochezia [None]
  - Pyrexia [None]
